FAERS Safety Report 11013825 (Version 2)
Quarter: 2015Q2

REPORT INFORMATION
  Report Type: Spontaneous
  Country: US (occurrence: US)
  Receive Date: 20150412
  Receipt Date: 20150525
  Transmission Date: 20150821
  Serious: No
  Sender: FDA-Public Use
  Company Number: US-JNJFOC-20120901951

PATIENT
  Sex: Female

DRUGS (4)
  1. COREG [Concomitant]
     Active Substance: CARVEDILOL
     Route: 065
  2. AMITRIPTYLINE [Concomitant]
     Active Substance: AMITRIPTYLINE
     Route: 065
  3. TRAMADOL HYDROCHLORIDE AND ACETAMINOPHEN [Suspect]
     Active Substance: ACETAMINOPHEN\TRAMADOL HYDROCHLORIDE
     Indication: PAIN
     Dosage: 37.5/325MG
     Route: 048
  4. MICARDIS [Concomitant]
     Active Substance: TELMISARTAN
     Route: 065

REACTIONS (1)
  - Weight decreased [Unknown]
